FAERS Safety Report 6620715-4 (Version None)
Quarter: 2010Q1

REPORT INFORMATION
  Report Type: 
  Country: None (occurrence: None)
  Receive Date: 20100309
  Receipt Date: 20100304
  Transmission Date: 20100710
  Serious: Yes (Other)
  Sender: FDA-Public Use
  Company Number: BR-BAYER-200916986LA

PATIENT
  Age: 25 Year
  Sex: Female

DRUGS (2)
  1. YASMIN [Suspect]
     Indication: CONTRACEPTION
     Dosage: SIX DAYS OF FREE PILL INTERVAL
     Route: 048
     Dates: start: 20080101, end: 20090501
  2. ANTIBIOTICS [Concomitant]
     Indication: DRUG USE FOR UNKNOWN INDICATION
     Route: 048

REACTIONS (4)
  - ABORTION THREATENED [None]
  - PELVIC PAIN [None]
  - PREGNANCY ON ORAL CONTRACEPTIVE [None]
  - UTERINE PAIN [None]
